FAERS Safety Report 7992745-1 (Version None)
Quarter: 2011Q4

REPORT INFORMATION
  Report Type: 
  Country: None (occurrence: None)
  Receive Date: 20111219
  Receipt Date: 20101220
  Transmission Date: 20120403
  Serious: No
  Sender: FDA-Public Use
  Company Number: US-ASTRAZENECA-2010SE44672

PATIENT
  Age: 19024 Day
  Sex: Female

DRUGS (2)
  1. CRESTOR [Suspect]
     Route: 048
  2. CRESTOR [Suspect]
     Indication: DYSLIPIDAEMIA
     Route: 048

REACTIONS (6)
  - PARAESTHESIA [None]
  - DYSPHAGIA [None]
  - MYALGIA [None]
  - DRUG HYPERSENSITIVITY [None]
  - PHARYNGEAL OEDEMA [None]
  - DRUG DOSE OMISSION [None]
